FAERS Safety Report 6486564-5 (Version None)
Quarter: 2009Q4

REPORT INFORMATION
  Report Type: 
  Country: None (occurrence: None)
  Receive Date: 20091210
  Receipt Date: 20091202
  Transmission Date: 20100525
  Serious: Yes (Other)
  Sender: FDA-Public Use
  Company Number: US-BRISTOL-MYERS SQUIBB COMPANY-14886238

PATIENT

DRUGS (1)
  1. ORENCIA [Suspect]

REACTIONS (2)
  - MALAISE [None]
  - SURGERY [None]
